FAERS Safety Report 5759940-3 (Version None)
Quarter: 2008Q2

REPORT INFORMATION
  Report Type: 
  Country: None (occurrence: None)
  Receive Date: 20080605
  Receipt Date: 20080528
  Transmission Date: 20081010
  Serious: Yes (Hospitalization, Disabling)
  Sender: FDA-Public Use
  Company Number: US-MERCK-0705USA01436

PATIENT
  Age: 56 Year
  Sex: Female
  Weight: 73 kg

DRUGS (1)
  1. FOSAMAX [Suspect]
     Indication: OSTEOPOROSIS
     Route: 048
     Dates: start: 19980430, end: 20000907

REACTIONS (22)
  - ABDOMINAL DISCOMFORT [None]
  - ADVERSE EVENT [None]
  - ARTHRALGIA [None]
  - BACK INJURY [None]
  - DERMAL CYST [None]
  - DRUG INEFFECTIVE [None]
  - DYSPAREUNIA [None]
  - EXOSTOSIS [None]
  - FAILURE OF IMPLANT [None]
  - LEUKOPENIA [None]
  - ORAL INFECTION [None]
  - ORAL PAIN [None]
  - PAIN IN JAW [None]
  - PELVIC PAIN [None]
  - RECTAL HAEMORRHAGE [None]
  - RESORPTION BONE INCREASED [None]
  - SINUSITIS [None]
  - STOMACH DISCOMFORT [None]
  - SUBCUTANEOUS ABSCESS [None]
  - TEMPOROMANDIBULAR JOINT SYNDROME [None]
  - TOOTH INFECTION [None]
  - VESTIBULAR DISORDER [None]
